FAERS Safety Report 9808953 (Version 1)
Quarter: 2014Q1

REPORT INFORMATION
  Report Type: Spontaneous
  Country: FR (occurrence: FR)
  Receive Date: 20140110
  Receipt Date: 20140110
  Transmission Date: 20141002
  Serious: Yes (Hospitalization)
  Sender: FDA-Public Use
  Company Number: FR-PFIZER INC-2014001516

PATIENT
  Age: 62 Year
  Sex: Female

DRUGS (4)
  1. ZYVOXID [Suspect]
     Indication: SEPTIC SHOCK
     Dosage: 600 MG, 2X/DAY
     Route: 042
     Dates: start: 20131120, end: 20131201
  2. CEFEPIME [Suspect]
     Indication: SEPTIC SHOCK
     Dosage: 2 G, 3X/DAY
     Route: 042
     Dates: start: 20131120, end: 20131128
  3. GENTAMICIN ^PANPHARMA^ [Suspect]
     Indication: SEPTIC SHOCK
     Dosage: UNK
     Dates: start: 20131117, end: 20131120
  4. TIENAM [Concomitant]
     Indication: SEPTIC SHOCK
     Dosage: UNK
     Dates: start: 20131117, end: 20131120

REACTIONS (1)
  - Renal failure acute [Recovering/Resolving]
